FAERS Safety Report 7379582-6 (Version None)
Quarter: 2011Q1

REPORT INFORMATION
  Report Type: 
  Country: None (occurrence: None)
  Receive Date: 20110329
  Receipt Date: 20080505
  Transmission Date: 20110831
  Serious: No
  Sender: FDA-Public Use
  Company Number: 2008BI012104

PATIENT
  Sex: Female

DRUGS (2)
  1. TYSABRI [Suspect]
     Indication: MULTIPLE SCLEROSIS
     Route: 042
     Dates: start: 20080306
  2. PROVIGIL [Concomitant]
     Indication: FATIGUE
     Dates: start: 20060801

REACTIONS (2)
  - FATIGUE [None]
  - PARAESTHESIA [None]
